FAERS Safety Report 5348312-1 (Version None)
Quarter: 2007Q2

REPORT INFORMATION
  Report Type: 
  Country: None (occurrence: None)
  Receive Date: 20070605
  Receipt Date: 20070525
  Transmission Date: 20071010
  Serious: Yes (Death)
  Sender: FDA-Public Use
  Company Number: 16692

PATIENT
  Age: 36 Year
  Sex: Male

DRUGS (4)
  1. CYTARABINE [Suspect]
     Indication: CHEMOTHERAPY
     Dosage: 2000 MG/M2 PER_CYCLE IV
     Route: 040
     Dates: end: 20070401
  2. FLUDARABINE PHOSPHATE [Suspect]
     Indication: CHEMOTHERAPY
     Dosage: 30 MG/M2 PER_CYCLE IV
     Route: 042
     Dates: end: 20070401
  3. IDARUBICIN HCL [Suspect]
     Indication: CHEMOTHERAPY
     Dosage: 8 MG/M2 PER_CYCLE IV
     Route: 042
     Dates: end: 20070401
  4. NEUPOGEN [Suspect]
     Indication: CHEMOTHERAPY
     Dosage: 263 UG TOTAL SC
     Route: 058
     Dates: end: 20070401

REACTIONS (5)
  - ACUTE MYELOID LEUKAEMIA [None]
  - GENERAL PHYSICAL HEALTH DETERIORATION [None]
  - MULTI-ORGAN FAILURE [None]
  - NEUTROPENIC SEPSIS [None]
  - NO THERAPEUTIC RESPONSE [None]
